FAERS Safety Report 8027191-8 (Version None)
Quarter: 2012Q1

REPORT INFORMATION
  Report Type: 
  Country: None (occurrence: None)
  Receive Date: 20120106
  Receipt Date: 20111227
  Transmission Date: 20120608
  Serious: Yes (Hospitalization)
  Sender: FDA-Public Use
  Company Number: JP-ELI_LILLY_AND_COMPANY-JP201107005513

PATIENT
  Sex: Male

DRUGS (1)
  1. FORTEO [Suspect]
     Dosage: UNK
     Route: 058
     Dates: start: 20110707

REACTIONS (7)
  - URINE ODOUR ABNORMAL [None]
  - FALL [None]
  - CONTUSION [None]
  - FEMUR FRACTURE [None]
  - PNEUMONIA ASPIRATION [None]
  - PNEUMONIA [None]
  - INJECTION SITE HAEMATOMA [None]
